FAERS Safety Report 13843516 (Version 2)
Quarter: 2017Q3

REPORT INFORMATION
  Report Type: Spontaneous
  Country: US (occurrence: US)
  Receive Date: 20170808
  Receipt Date: 20170821
  Transmission Date: 20171127
  Serious: No
  Sender: FDA-Public Use
  Company Number: US-GLAXOSMITHKLINE-US2017121957

PATIENT
  Age: 52 Year
  Sex: Female

DRUGS (15)
  1. OXYBUTYNIN CHLORIDE ER [Concomitant]
     Active Substance: OXYBUTYNIN CHLORIDE
  2. FLUTICASONE PROPIONATE. [Concomitant]
     Active Substance: FLUTICASONE PROPIONATE
  3. DULOXETINE HYDROCHLORIDE. [Concomitant]
     Active Substance: DULOXETINE HYDROCHLORIDE
  4. TIZANIDINE HYDROCHLORIDE. [Concomitant]
     Active Substance: TIZANIDINE HYDROCHLORIDE
  5. BENLYSTA [Suspect]
     Active Substance: BELIMUMAB
     Indication: SYSTEMIC LUPUS ERYTHEMATOSUS
     Dosage: 914 MG, UNK
     Route: 042
     Dates: start: 20170711
  6. HYDROCHLOROTHIAZIDE. [Concomitant]
     Active Substance: HYDROCHLOROTHIAZIDE
  7. AMLODIPINE BESYLATE. [Concomitant]
     Active Substance: AMLODIPINE BESYLATE
  8. RESTASIS [Concomitant]
     Active Substance: CYCLOSPORINE
  9. TRAMADOL HYDROCHLORIDE. [Concomitant]
     Active Substance: TRAMADOL HYDROCHLORIDE
  10. AMITIZA [Concomitant]
     Active Substance: LUBIPROSTONE
  11. GABAPETIN [Concomitant]
     Active Substance: GABAPENTIN
  12. HYDROXYCHLOROQUINE [Concomitant]
     Active Substance: HYDROXYCHLOROQUINE
  13. OMEPRAZOLE DR [Concomitant]
     Active Substance: OMEPRAZOLE
  14. POLYETHYLENE GLYCOL [Concomitant]
     Active Substance: POLYETHYLENE GLYCOLS
  15. ATENOLOL. [Concomitant]
     Active Substance: ATENOLOL

REACTIONS (10)
  - Rhinorrhoea [Recovering/Resolving]
  - Arthralgia [Recovering/Resolving]
  - Nausea [Recovering/Resolving]
  - Sluggishness [Unknown]
  - Increased appetite [Not Recovered/Not Resolved]
  - Pain [Unknown]
  - Weight increased [Not Recovered/Not Resolved]
  - Fatigue [Not Recovered/Not Resolved]
  - Headache [Recovering/Resolving]
  - Dysuria [Not Recovered/Not Resolved]

NARRATIVE: CASE EVENT DATE: 2017
